FAERS Safety Report 8586674-2 (Version None)
Quarter: 2012Q3

REPORT INFORMATION
  Report Type: 
  Country: None (occurrence: None)
  Receive Date: 20120810
  Receipt Date: 20120726
  Transmission Date: 20120928
  Serious: No
  Sender: FDA-Public Use
  Company Number: US-009507513-1208USA003341

PATIENT

DRUGS (2)
  1. CLARITIN [Suspect]
     Dosage: 20 MG, ONCE
     Route: 048
     Dates: start: 20120726
  2. CLARITIN [Suspect]
     Indication: HYPERSENSITIVITY
     Dosage: 10 MG, QD
     Route: 048
     Dates: start: 20120101

REACTIONS (1)
  - ACCIDENTAL OVERDOSE [None]
